FAERS Safety Report 4283716-X (Version None)
Quarter: 2004Q1

REPORT INFORMATION
  Report Type: 
  Country: None (occurrence: None)
  Receive Date: 20040202
  Receipt Date: 20040126
  Transmission Date: 20041129
  Serious: Yes (Hospitalization)
  Sender: FDA-Public Use
  Company Number: WAES 0401GBR00227

PATIENT
  Age: 75 Year
  Sex: Female
  Weight: 49 kg

DRUGS (3)
  1. BENZALKONIUM CHLORIDE AND MINERAL OIL AND TRICLOSAN [Concomitant]
     Dates: start: 20001129
  2. DERMATOLOGIC (UNSPECIFIED) [Concomitant]
     Dates: start: 20001129
  3. VIOXX [Suspect]
     Indication: ARTHRALGIA
     Route: 048
     Dates: start: 20020909, end: 20030708

REACTIONS (4)
  - DUODENAL ULCER [None]
  - GASTRIC ULCER [None]
  - GASTROINTESTINAL HAEMORRHAGE [None]
  - MYOCARDIAL INFARCTION [None]
